FAERS Safety Report 10873630 (Version 1)
Quarter: 2015Q1

REPORT INFORMATION
  Report Type: Spontaneous
  Country: FR (occurrence: FR)
  Receive Date: 20150227
  Receipt Date: 20150227
  Transmission Date: 20150721
  Serious: Yes (Hospitalization)
  Sender: FDA-Public Use
  Company Number: FR-SA-2015SA022450

PATIENT
  Age: 76 Year
  Sex: Female

DRUGS (10)
  1. DUPHALAC [Concomitant]
     Active Substance: LACTULOSE
     Route: 048
  2. HUMALOG [Suspect]
     Active Substance: INSULIN LISPRO
     Route: 058
  3. LANTUS [Suspect]
     Active Substance: INSULIN GLARGINE
     Route: 058
  4. ALDACTONE [Suspect]
     Active Substance: SPIRONOLACTONE
     Route: 048
  5. DAFALGAN [Concomitant]
     Active Substance: ACETAMINOPHEN
     Route: 048
  6. AVLOCARDYL [Suspect]
     Active Substance: PROPRANOLOL HYDROCHLORIDE
     Dosage: STRENGTH: 40 MG
     Route: 065
  7. SEROPLEX [Suspect]
     Active Substance: ESCITALOPRAM OXALATE
     Dosage: STRENGTH: 10 MG
     Route: 048
  8. HEPTAMINOL [Concomitant]
     Active Substance: HEPTAMINOL
     Route: 048
  9. LANTUS [Suspect]
     Active Substance: INSULIN GLARGINE
     Route: 058
  10. GAVISCON [Concomitant]
     Active Substance: ALUMINUM HYDROXIDE\MAGNESIUM CARBONATE
     Route: 048

REACTIONS (1)
  - Fall [Recovered/Resolved]

NARRATIVE: CASE EVENT DATE: 20141106
